FAERS Safety Report 5282802-5 (Version None)
Quarter: 2007Q2

REPORT INFORMATION
  Report Type: 
  Country: None (occurrence: None)
  Receive Date: 20070402
  Receipt Date: 20070323
  Transmission Date: 20071010
  Serious: Yes (Other)
  Sender: FDA-Public Use
  Company Number: CA-JNJFOC-20070305845

PATIENT

DRUGS (1)
  1. MICRONOR [Suspect]
     Indication: DRUG EXPOSURE VIA BREAST MILK

REACTIONS (2)
  - DRUG EXPOSURE VIA BREAST MILK [None]
  - WEIGHT DECREASED [None]
